FAERS Safety Report 19721823 (Version 1)
Quarter: 2021Q3

REPORT INFORMATION
  Report Type: Spontaneous
  Country: TR (occurrence: TR)
  Receive Date: 20210818
  Receipt Date: 20210818
  Transmission Date: 20211014
  Serious: Yes (Hospitalization, Other)
  Sender: FDA-Public Use
  Company Number: TR-VIWITPHARMA-2021VWTLIT00038

PATIENT
  Age: 14 Year
  Sex: Male

DRUGS (6)
  1. SERTRALINE [Suspect]
     Active Substance: SERTRALINE HYDROCHLORIDE
     Indication: ANXIETY
     Route: 065
  2. ASPIRINE [Interacting]
     Active Substance: ASPIRIN
     Indication: ARTERIOSPASM CORONARY
     Route: 065
  3. NAPROXEN. [Interacting]
     Active Substance: NAPROXEN
     Indication: ARTERIOSPASM CORONARY
     Route: 065
  4. METOPROLOL. [Interacting]
     Active Substance: METOPROLOL
     Indication: ARTERIOSPASM CORONARY
     Route: 065
  5. CAPTOPRIL. [Interacting]
     Active Substance: CAPTOPRIL
     Indication: ARTERIOSPASM CORONARY
     Route: 065
  6. SULBACTAM/AMPICILLIN [Concomitant]
     Active Substance: AMPICILLIN SODIUM\SULBACTAM SODIUM
     Indication: UPPER RESPIRATORY TRACT INFECTION
     Route: 065

REACTIONS (3)
  - Myocardial ischaemia [Recovered/Resolved]
  - Arteriospasm coronary [Recovered/Resolved]
  - Chest pain [Recovered/Resolved]
